FAERS Safety Report 9618374 (Version 3)
Quarter: 2013Q4

REPORT INFORMATION
  Report Type: Spontaneous
  Country: DE (occurrence: DE)
  Receive Date: 20131014
  Receipt Date: 20131108
  Transmission Date: 20140711
  Serious: Yes (Other)
  Sender: FDA-Public Use
  Company Number: DE-AMGEN-DEUSP2013067707

PATIENT
  Age: 70 Year
  Sex: Female

DRUGS (9)
  1. PROLIA [Suspect]
     Indication: OSTEOPOROSIS POSTMENOPAUSAL
     Dosage: 60 MG, Q6MO
     Route: 058
     Dates: start: 20110208
  2. LETROZOL [Suspect]
     Indication: BREAST CANCER
     Dosage: 2.5 MG, QD
     Route: 048
  3. BISO [Concomitant]
     Indication: HYPERTENSION
     Dosage: 5 MG, BID
     Route: 048
  4. LORZAAR PLUS [Concomitant]
     Indication: PARKINSON^S DISEASE
     Dosage: 5 MG, QD
     Route: 048
     Dates: start: 20091027
  5. MADOPAR [Concomitant]
     Indication: PARKINSON^S DISEASE
     Dosage: UNK UNK, QD
     Route: 048
     Dates: start: 2007
  6. AMANTADIN                          /00055901/ [Concomitant]
     Dosage: 100, BID
  7. PANTOPRAZOLE [Concomitant]
     Dosage: 20, BID
  8. VIGANTOLETTEN [Concomitant]
     Dosage: 1000
  9. CALCIUM [Concomitant]
     Dosage: UNK UNK, BID
     Route: 048

REACTIONS (2)
  - Breast cancer [Unknown]
  - Bone density decreased [Not Recovered/Not Resolved]
